FAERS Safety Report 14684512 (Version 1)
Quarter: 2018Q1

REPORT INFORMATION
  Report Type: Spontaneous
  Country: SE (occurrence: SE)
  Receive Date: 20180327
  Receipt Date: 20180327
  Transmission Date: 20180509
  Serious: Yes (Other)
  Sender: FDA-Public Use
  Company Number: SE-TEVA-2018-SE-871926

PATIENT
  Age: 66 Year
  Sex: Male

DRUGS (8)
  1. CITODON 500 MG/30 MG TABLETT [Concomitant]
  2. PRAMIPEXOLE. [Suspect]
     Active Substance: PRAMIPEXOLE
     Indication: RESTLESS LEGS SYNDROME
     Dates: end: 20171229
  3. OMEPRAZOLE. [Concomitant]
     Active Substance: OMEPRAZOLE
  4. SILDENAFIL. [Concomitant]
     Active Substance: SILDENAFIL
  5. LOCACORTEN-VIOFORM 0,2MG/ML + 10MG/ML ?RONDROPPAR, L?SNING [Concomitant]
  6. NAPROXEN. [Concomitant]
     Active Substance: NAPROXEN
  7. ALFUZOSIN [Concomitant]
     Active Substance: ALFUZOSIN
  8. FINASTERIDE. [Concomitant]
     Active Substance: FINASTERIDE

REACTIONS (2)
  - Sudden onset of sleep [Recovered/Resolved]
  - Altered state of consciousness [Recovered/Resolved]

NARRATIVE: CASE EVENT DATE: 20171227
